FAERS Safety Report 5032067-4 (Version None)
Quarter: 2006Q2

REPORT INFORMATION
  Report Type: 
  Country: None (occurrence: None)
  Receive Date: 20060619
  Receipt Date: 20060605
  Transmission Date: 20061013
  Serious: Yes (Hospitalization, Other)
  Sender: FDA-Public Use
  Company Number: CHPA2006US05524

PATIENT
  Age: 49 Year
  Sex: Female

DRUGS (22)
  1. EX-LAX UNKNOWN (NCH) [Suspect]
     Indication: CONSTIPATION
     Dosage: DAILY
     Dates: start: 19900101, end: 19950101
  2. DULCOLAX (NCH)(BISACODYL) [Suspect]
     Indication: CONSTIPATION
     Dosage: DAILY
     Dates: start: 19950101, end: 20000101
  3. CORRECTOL [Suspect]
     Dosage: DAILY
     Dates: start: 19900101, end: 19950101
  4. METAMUCIL(ISPAGHULA, PLANTAGO OVATA) [Suspect]
     Indication: CONSTIPATION
     Dosage: PRN
     Dates: start: 19900101
  5. CITRICAL(CALCIUM CARBONATE) [Suspect]
     Indication: CONSTIPATION
     Dosage: SEE IMAGE
     Route: 048
     Dates: start: 19900101
  6. MILK OF MAGNESIA TAB [Suspect]
     Indication: CONSTIPATION
     Dosage: PRN
     Dates: start: 19900101
  7. MYLANTA/USA/(CALCIUM CARBONATE) [Suspect]
     Indication: CONSTIPATION
     Dosage: PRN
     Dates: start: 19900101
  8. FLEET (SODIUM CITRATE, SODIUM LAURYL SULFOACETATE) SUPPOSITORY [Suspect]
     Indication: CONSTIPATION
     Dosage: PRN
  9. FLEET ENEMA /00766901/(SODIUM PHOSPHATE, SODIUM PHOSPHATE MONOBASIC (A [Suspect]
     Indication: CONSTIPATION
     Dosage: PRN
     Dates: start: 19950101, end: 20000101
  10. COD-LIVER OIL(COD-LIVER OIL) [Suspect]
     Indication: CONSTIPATION
     Dosage: PRN
     Dates: start: 19950101, end: 20000101
  11. SALINE LAXATIVE(SODIUM CHLORIDE) [Suspect]
     Indication: CONSTIPATION
     Dosage: PRN
     Dates: start: 20030101, end: 20030101
  12. EPSOM SALTS(MAGNESIUM SULFATE) [Suspect]
     Indication: CONSTIPATION
     Dosage: PRN
     Dates: start: 19800101, end: 19850101
  13. DOCUSATE(DOCUSATE) [Suspect]
     Indication: CONSTIPATION
     Dosage: ONCE DAILY,
     Dates: start: 20010101, end: 20010101
  14. MIRALAX [Suspect]
     Indication: CONSTIPATION
     Dosage: 8 OUNCES, DAILY
     Dates: start: 20010101, end: 20010101
  15. MOBIC [Concomitant]
  16. ZOLOFT [Concomitant]
  17. CRESTOR [Concomitant]
  18. LIPITOR [Concomitant]
  19. ATENOLOL [Concomitant]
  20. XANAX [Concomitant]
  21. NEXIUM [Concomitant]
  22. CARAFATE [Concomitant]

REACTIONS (28)
  - ANAL SPASM [None]
  - CHANGE OF BOWEL HABIT [None]
  - CHOLECYSTITIS [None]
  - CHOLECYSTITIS INFECTIVE [None]
  - CHOLELITHIASIS [None]
  - COLONIC POLYP [None]
  - CONSTIPATION [None]
  - DRUG INEFFECTIVE [None]
  - DUODENITIS [None]
  - DYSGEUSIA [None]
  - DYSPHAGIA [None]
  - GALLBLADDER DISORDER [None]
  - GALLBLADDER POLYP [None]
  - GASTRITIS EROSIVE [None]
  - GASTROINTESTINAL HAEMORRHAGE [None]
  - GASTROOESOPHAGEAL REFLUX DISEASE [None]
  - HAEMORRHOIDS [None]
  - HELICOBACTER GASTRITIS [None]
  - HIATUS HERNIA [None]
  - INTESTINAL ISCHAEMIA [None]
  - INTESTINAL POLYP [None]
  - LAXATIVE ABUSE [None]
  - OCCULT BLOOD POSITIVE [None]
  - OESOPHAGITIS [None]
  - PROCTALGIA [None]
  - RECTAL HAEMORRHAGE [None]
  - REFLUX OESOPHAGITIS [None]
  - SWELLING [None]
